FAERS Safety Report 16590379 (Version 2)
Quarter: 2019Q3

REPORT INFORMATION
  Report Type: Report from Study
  Country: CO (occurrence: CO)
  Receive Date: 20190718
  Receipt Date: 20190819
  Transmission Date: 20191004
  Serious: Yes (Death, Hospitalization)
  Sender: FDA-Public Use
  Company Number: PHHY2019CO165946

PATIENT
  Age: 57 Year
  Sex: Male
  Weight: 68 kg

DRUGS (3)
  1. MEKINIST [Suspect]
     Active Substance: TRAMETINIB DIMETHYL SULFOXIDE
     Indication: METASTATIC MALIGNANT MELANOMA
     Dosage: 2 MG, QD
     Route: 048
     Dates: start: 20190228
  2. TAFINLAR [Suspect]
     Active Substance: DABRAFENIB MESYLATE
     Indication: METASTATIC MALIGNANT MELANOMA
     Dosage: 75 MG, QD
     Route: 048
     Dates: start: 20190228
  3. TAFINLAR [Suspect]
     Active Substance: DABRAFENIB MESYLATE
     Dosage: 150 MG, Q12H
     Route: 048

REACTIONS (6)
  - Urine flow decreased [Unknown]
  - Oedema [Unknown]
  - Haemorrhage [Unknown]
  - Inappropriate schedule of product administration [Unknown]
  - Haematuria [Unknown]
  - Intestinal obstruction [Fatal]

NARRATIVE: CASE EVENT DATE: 20190809
